FAERS Safety Report 13945474 (Version 4)
Quarter: 2017Q4

REPORT INFORMATION
  Report Type: Spontaneous
  Country: US (occurrence: US)
  Receive Date: 20170907
  Receipt Date: 20171002
  Transmission Date: 20180320
  Serious: Yes (Other)
  Sender: FDA-Public Use
  Company Number: US-PFIZER INC-2017385923

PATIENT
  Age: 40 Year
  Sex: Male

DRUGS (4)
  1. ALPRAZOLAM. [Suspect]
     Active Substance: ALPRAZOLAM
     Dosage: 1.5 MG, UNK
  2. ALPRAZOLAM. [Suspect]
     Active Substance: ALPRAZOLAM
     Dosage: 2 MG, 3X/DAY
  3. ALPRAZOLAM. [Suspect]
     Active Substance: ALPRAZOLAM
     Indication: PANIC DISORDER
     Dosage: 0.5 MG, UNK
  4. ALPRAZOLAM. [Suspect]
     Active Substance: ALPRAZOLAM
     Dosage: 1 MG, UNK

REACTIONS (6)
  - Drug ineffective [Not Recovered/Not Resolved]
  - Drug abuse [Unknown]
  - Drug dependence [Unknown]
  - Seizure [Unknown]
  - Withdrawal syndrome [Unknown]
  - Drug effect incomplete [Unknown]
